FAERS Safety Report 25178605 (Version 1)
Quarter: 2025Q2

REPORT INFORMATION
  Report Type: Spontaneous
  Country: JP (occurrence: JP)
  Receive Date: 20250409
  Receipt Date: 20250409
  Transmission Date: 20250716
  Serious: Yes (Death, Other)
  Sender: BIOCRYST PHARMACEUTICALS
  Company Number: JP-BIOCRYST PHARMACEUTICALS, INC.-2025BCR00448

PATIENT
  Age: 75 Year
  Sex: Female

DRUGS (1)
  1. RAPIACTA [Suspect]
     Active Substance: PERAMIVIR
     Indication: Influenza
     Dosage: 150 MG, QD
     Route: 042
     Dates: start: 20250103, end: 20250105

REACTIONS (1)
  - Cardiac failure [Fatal]
